FAERS Safety Report 9660656 (Version 4)
Quarter: 2014Q1

REPORT INFORMATION
  Report Type: Report from Study
  Country: JP (occurrence: JP)
  Receive Date: 20131031
  Receipt Date: 20140214
  Transmission Date: 20141002
  Serious: Yes (Hospitalization)
  Sender: FDA-Public Use
  Company Number: JP-ABBVIE-13X-087-1097468-00

PATIENT
  Age: 65 Year
  Sex: Female

DRUGS (4)
  1. LIPACREON [Suspect]
     Indication: PANCREATIC INSUFFICIENCY
     Route: 048
     Dates: start: 20120809, end: 20121115
  2. LIPACREON [Suspect]
     Dates: start: 20121125
  3. FAMOTIDINE [Concomitant]
     Indication: ANASTOMOTIC ULCER
  4. FAMOTIDINE [Concomitant]
     Indication: PROPHYLAXIS

REACTIONS (1)
  - Gastric ulcer [Recovering/Resolving]
